FAERS Safety Report 6383726-2 (Version None)
Quarter: 2009Q3

REPORT INFORMATION
  Report Type: 
  Country: None (occurrence: None)
  Receive Date: 20090929
  Receipt Date: 20090929
  Transmission Date: 20100115
  Serious: Yes (Life-Threatening)
  Sender: FDA-Public Use
  Company Number: None

PATIENT
  Age: 72 Year
  Sex: Female
  Weight: 53.5244 kg

DRUGS (1)
  1. AVELOX [Suspect]
     Indication: SINUSITIS
     Dosage: 400 MG. ONCE A DAY PO
     Route: 048
     Dates: start: 20090907, end: 20090909

REACTIONS (7)
  - ERYTHEMA [None]
  - FEELING ABNORMAL [None]
  - MASS [None]
  - PALPITATIONS [None]
  - SWELLING FACE [None]
  - SYNCOPE [None]
  - TREMOR [None]
